FAERS Safety Report 24308877 (Version 1)
Quarter: 2024Q3

REPORT INFORMATION
  Report Type: Spontaneous
  Country: US (occurrence: US)
  Receive Date: 20240911
  Receipt Date: 20240911
  Transmission Date: 20241017
  Serious: Yes (Other)
  Sender: PFIZER
  Company Number: US-PFIZER INC-202400252913

PATIENT
  Age: 84 Year
  Sex: Female
  Weight: 75.737 kg

DRUGS (7)
  1. IBRANCE [Suspect]
     Active Substance: PALBOCICLIB
     Indication: Breast cancer female
     Dosage: 100MG TABLET; 1 EVERY DAY; TAKES 3 WEEKS ON AND 2 WEEKS OFF
     Dates: start: 202310
  2. LETROZOLE [Concomitant]
     Active Substance: LETROZOLE
     Dosage: IN THE MORNING
  3. LOSARTAN [Concomitant]
     Active Substance: LOSARTAN\LOSARTAN POTASSIUM
     Dosage: IN THE EVENING
  4. PRAVASTATIN [Concomitant]
     Active Substance: PRAVASTATIN
     Dosage: IN THE EVENING/AT NIGHT
  5. LEVOTHYROXINE [Concomitant]
     Active Substance: LEVOTHYROXINE\LEVOTHYROXINE SODIUM
     Dosage: IN THE EVENING
  6. TYLENOL EXTRA STRENGTH [Concomitant]
     Active Substance: ACETAMINOPHEN
     Indication: Arthralgia
     Dosage: IN THE MORNING
  7. DICLOFENAC SODIUM [Concomitant]
     Active Substance: DICLOFENAC\DICLOFENAC SODIUM
     Indication: Hip surgery
     Route: 061

REACTIONS (5)
  - Haematocrit decreased [Unknown]
  - Diarrhoea [Not Recovered/Not Resolved]
  - Body height decreased [Unknown]
  - Weight decreased [Unknown]
  - Off label use [Unknown]

NARRATIVE: CASE EVENT DATE: 20231001
